FAERS Safety Report 21026656 (Version 1)
Quarter: 2022Q2

REPORT INFORMATION
  Report Type: Spontaneous
  Country: US (occurrence: None)
  Receive Date: 20220629
  Receipt Date: 20220629
  Transmission Date: 20220721
  Serious: Yes (Other)
  Sender: FDA-Public Use
  Company Number: None

PATIENT
  Age: 73 Year
  Sex: Female
  Weight: 72.45 kg

DRUGS (12)
  1. MOLNUPIRAVIR [Suspect]
     Active Substance: MOLNUPIRAVIR
     Indication: COVID-19
     Dosage: FREQUENCY : EVERY 12 HOURS;?
     Route: 048
     Dates: start: 20220627, end: 20220629
  2. astoravastatin [Concomitant]
  3. BENICAR [Concomitant]
     Active Substance: OLMESARTAN MEDOXOMIL
  4. spirolalactone [Concomitant]
  5. PROTONIX [Concomitant]
     Active Substance: PANTOPRAZOLE SODIUM
  6. ZINC [Concomitant]
     Active Substance: ZINC
  7. VITAMIN D [Concomitant]
     Active Substance: VITAMIN D NOS
  8. CALCIUM [Concomitant]
     Active Substance: CALCIUM
  9. VITAMIN C [Concomitant]
     Active Substance: ASCORBIC ACID
  10. LOW DOSE ASPIRIN [Concomitant]
     Active Substance: ASPIRIN
  11. VITAMIN B12 [Concomitant]
     Active Substance: CYANOCOBALAMIN
  12. FISH OIL [Concomitant]
     Active Substance: FISH OIL

REACTIONS (2)
  - Rash [None]
  - Urticaria [None]

NARRATIVE: CASE EVENT DATE: 20220629
